FAERS Safety Report 21602026 (Version 1)
Quarter: 2022Q4

REPORT INFORMATION
  Report Type: Report from Study
  Country: BR (occurrence: BR)
  Receive Date: 20221116
  Receipt Date: 20221116
  Transmission Date: 20230113
  Serious: Yes (Death, Hospitalization, Other)
  Sender: FDA-Public Use
  Company Number: BR-002147023-NVSC2022BR257399

PATIENT
  Sex: Female

DRUGS (1)
  1. COSENTYX [Suspect]
     Active Substance: SECUKINUMAB
     Indication: Ankylosing spondylitis
     Dosage: UNK
     Route: 065

REACTIONS (6)
  - Haemorrhage [Fatal]
  - Vascular rupture [Fatal]
  - Heart rate increased [Unknown]
  - Pneumonia [Unknown]
  - Cough [Unknown]
  - Emotional disorder [Unknown]
